FAERS Safety Report 20589070 (Version 1)
Quarter: 2022Q1

REPORT INFORMATION
  Report Type: Spontaneous
  Country: US (occurrence: None)
  Receive Date: 20220311
  Receipt Date: 20220311
  Transmission Date: 20220423
  Serious: Yes (Other)
  Sender: FDA-Public Use
  Company Number: None

PATIENT
  Age: 43 Year
  Sex: Female

DRUGS (13)
  1. OPSUMIT [Suspect]
     Active Substance: MACITENTAN
     Indication: Pulmonary arterial hypertension
     Dosage: 10MG QD ORAL?
     Route: 048
     Dates: start: 20160201
  2. OPSUMIT [Suspect]
     Active Substance: MACITENTAN
     Indication: Heritable pulmonary arterial hypertension
  3. TADALAFIL [Concomitant]
     Active Substance: TADALAFIL
  4. UPTRAVI [Concomitant]
     Active Substance: SELEXIPAG
  5. OMEPRAZOLE [Concomitant]
     Active Substance: OMEPRAZOLE
  6. OMEPRAZOLE [Concomitant]
     Active Substance: OMEPRAZOLE
  7. IMITREX [Concomitant]
     Active Substance: SUMATRIPTAN SUCCINATE
  8. ATROVENT [Concomitant]
     Active Substance: IPRATROPIUM BROMIDE
  9. ZOFRAN [Concomitant]
     Active Substance: ONDANSETRON HYDROCHLORIDE
  10. SULFASALAZINE [Concomitant]
     Active Substance: SULFASALAZINE
  11. CELLCEPT [Concomitant]
     Active Substance: MYCOPHENOLATE MOFETIL
  12. MORPHINE [Concomitant]
     Active Substance: MORPHINE
  13. VITAMIN D2 [Concomitant]
     Active Substance: ERGOCALCIFEROL

REACTIONS (4)
  - Presyncope [None]
  - Hypoglycaemia [None]
  - Blood pressure decreased [None]
  - Blood glucose decreased [None]

NARRATIVE: CASE EVENT DATE: 20220301
